FAERS Safety Report 5972230-9 (Version None)
Quarter: 2008Q4

REPORT INFORMATION
  Report Type: 
  Country: None (occurrence: None)
  Receive Date: 20081201
  Receipt Date: 20071115
  Transmission Date: 20090506
  Serious: No
  Sender: FDA-Public Use
  Company Number: US-TEVA-164989USA

PATIENT
  Sex: Female

DRUGS (2)
  1. SALBUTAMOL SULFATE INHALATION, 0.09 MG [Suspect]
     Route: 055
     Dates: start: 20071101
  2. SERETIDE [Concomitant]

REACTIONS (5)
  - ABDOMINAL DISTENSION [None]
  - DRUG INEFFECTIVE [None]
  - DYSGEUSIA [None]
  - DYSPEPSIA [None]
  - DYSPHONIA [None]
